FAERS Safety Report 8962366 (Version 1)
Quarter: 2012Q4

REPORT INFORMATION
  Report Type: 
  Country: US (occurrence: None)
  Receive Date: 20121211
  Receipt Date: 20121211
  Transmission Date: 20130627
  Serious: Yes (Hospitalization)
  Sender: FDA-Public Use
  Company Number: None

PATIENT
  Sex: Male
  Weight: 12.8 kg

DRUGS (6)
  1. CYCLOPHOSPHAMIDE [Suspect]
  2. DACTINOMYCIN [Suspect]
  3. G-CSF [Suspect]
     Dosage: 720 mcg
  4. IRINOTECAN [Suspect]
  5. MESNA [Suspect]
  6. VINCRISTINE SULFATE [Suspect]

REACTIONS (1)
  - Gastrointestinal haemorrhage [None]
